FAERS Safety Report 23035810 (Version 1)
Quarter: 2023Q4

REPORT INFORMATION
  Report Type: Spontaneous
  Country: US (occurrence: US)
  Receive Date: 20231006
  Receipt Date: 20231006
  Transmission Date: 20240110
  Serious: No
  Sender: FDA-Public Use
  Company Number: US-VIIV HEALTHCARE LIMITED-US2023132458

PATIENT
  Sex: Male

DRUGS (3)
  1. CABENUVA [Suspect]
     Active Substance: CABOTEGRAVIR\RILPIVIRINE
     Indication: Ill-defined disorder
     Dosage: UNK
  2. CABENUVA [Suspect]
     Active Substance: CABOTEGRAVIR\RILPIVIRINE
  3. CABENUVA [Suspect]
     Active Substance: CABOTEGRAVIR\RILPIVIRINE

REACTIONS (1)
  - Off label use [Unknown]
